FAERS Safety Report 8852413 (Version 1)
Quarter: 2012Q4

REPORT INFORMATION
  Report Type: 
  Country: US (occurrence: US)
  Receive Date: 20121022
  Receipt Date: 20121022
  Transmission Date: 20130627
  Serious: Yes (Other)
  Sender: FDA-Public Use
  Company Number: US-ASTRAZENECA-2012SE78638

PATIENT
  Sex: Female

DRUGS (13)
  1. OMEPRAZOLE [Suspect]
     Route: 048
  2. METOPROLOL [Interacting]
     Route: 048
  3. CALTRATE [Interacting]
     Dosage: 2 DOSAGE FORM, IN  MORNING, 600 D-SOFT CHEW
     Route: 065
  4. CENTRUM SILVER [Interacting]
     Route: 065
  5. SPIRONOLACTONE-HCTZ [Concomitant]
     Dosage: 1 25/25 TABLET IN MORNING
  6. OMEGA 3 EPA-DHA [Concomitant]
     Dosage: 1 CAPSULE IN MORNING
  7. BIOTIN [Concomitant]
  8. SUPER B COMPLEX [Concomitant]
     Dosage: 1 IN MORNING
  9. COLON HEALTH PROBIOTIC CAPSULE [Concomitant]
     Dosage: 1 IN MORNING AND 1 IN EVENING
  10. COLACE [Concomitant]
     Dosage: 100 MG, 1 IN MORNING AND 1 IN EVENING
  11. PRAVASTATIN SODIUM [Concomitant]
  12. BAYER ASPIRIN [Concomitant]
     Dosage: 325, 1 DF, IN EVENING
  13. METAMUCIL [Concomitant]

REACTIONS (3)
  - Drug interaction [Unknown]
  - Loss of consciousness [Unknown]
  - Memory impairment [Unknown]
